FAERS Safety Report 9348927 (Version 1)
Quarter: 2013Q2

REPORT INFORMATION
  Report Type: Report from Study
  Country: JP (occurrence: JP)
  Receive Date: 20130614
  Receipt Date: 20130614
  Transmission Date: 20140414
  Serious: Yes (Other)
  Sender: FDA-Public Use
  Company Number: JP-009507513-1305JPN005721

PATIENT
  Age: 40 Year
  Sex: Male

DRUGS (1)
  1. REMERON TABLETS 15MG [Suspect]
     Route: 048
     Dates: start: 20101005, end: 20101006

REACTIONS (3)
  - Sleep paralysis [Recovered/Resolved]
  - Hypoaesthesia [Recovered/Resolved]
  - Middle insomnia [Recovered/Resolved]
